FAERS Safety Report 5004262-1 (Version None)
Quarter: 2006Q2

REPORT INFORMATION
  Report Type: 
  Country: None (occurrence: None)
  Receive Date: 20060517
  Receipt Date: 20051001
  Transmission Date: 20061013
  Serious: Yes (Hospitalization)
  Sender: FDA-Public Use
  Company Number: PR-MERCK-0510USA01639

PATIENT
  Age: 43 Year
  Sex: Male
  Weight: 109 kg

DRUGS (2)
  1. VIOXX [Suspect]
     Indication: PAIN
     Route: 048
     Dates: start: 19980518, end: 20040901
  2. VIOXX [Suspect]
     Route: 048
     Dates: start: 19980518, end: 20040901

REACTIONS (5)
  - CHEST PAIN [None]
  - GALLBLADDER DISORDER [None]
  - MYOCARDIAL INFARCTION [None]
  - RETINAL HAEMORRHAGE [None]
  - SKIN ULCER [None]
